FAERS Safety Report 4924547-4 (Version None)
Quarter: 2006Q1

REPORT INFORMATION
  Report Type: 
  Country: None (occurrence: None)
  Receive Date: 20060222
  Receipt Date: 20060210
  Transmission Date: 20060701
  Serious: Yes (Hospitalization)
  Sender: FDA-Public Use
  Company Number: 2006020137

PATIENT
  Sex: Male

DRUGS (3)
  1. VFEND [Suspect]
     Indication: BRONCHOPULMONARY ASPERGILLOSIS
     Dosage: 400 MG (200 MG, BID), INTERVAL:  EVERY DAY)
     Dates: start: 20051101, end: 20060202
  2. AMITRIPTYLINE HCL [Concomitant]
  3. NEXIUM [Concomitant]

REACTIONS (4)
  - C-REACTIVE PROTEIN INCREASED [None]
  - EOSINOPHILIA [None]
  - LEUKOCYTOSIS [None]
  - PYREXIA [None]
